FAERS Safety Report 23196216 (Version 8)
Quarter: 2024Q2

REPORT INFORMATION
  Report Type: Spontaneous
  Country: US (occurrence: US)
  Receive Date: 20231117
  Receipt Date: 20240613
  Transmission Date: 20240716
  Serious: No
  Sender: FDA-Public Use
  Company Number: US-SANOFI-01838361

PATIENT
  Age: 70 Year
  Sex: Female

DRUGS (1)
  1. DUPIXENT [Suspect]
     Active Substance: DUPILUMAB
     Indication: Dermatitis atopic
     Dosage: 300 MG, QOW
     Route: 058

REACTIONS (15)
  - Sinus congestion [Unknown]
  - Oropharyngeal pain [Unknown]
  - Injection site mass [Unknown]
  - Palpitations [Unknown]
  - Optic nerve disorder [Unknown]
  - Cough [Not Recovered/Not Resolved]
  - Eye pain [Unknown]
  - Upper respiratory tract infection [Unknown]
  - Dry eye [Unknown]
  - Pruritus [Unknown]
  - Therapeutic response shortened [Unknown]
  - Exposure via skin contact [Unknown]
  - Accidental exposure to product [Unknown]
  - Eye pruritus [Unknown]
  - Eye irritation [Unknown]

NARRATIVE: CASE EVENT DATE: 20231201
